FAERS Safety Report 13420978 (Version 1)
Quarter: 2017Q2

REPORT INFORMATION
  Report Type: Report from Study
  Country: IT (occurrence: IT)
  Receive Date: 20170410
  Receipt Date: 20170410
  Transmission Date: 20170830
  Serious: Yes (Other)
  Sender: FDA-Public Use
  Company Number: IT-ROCHE-1915599

PATIENT

DRUGS (2)
  1. CAPECITABINE. [Suspect]
     Active Substance: CAPECITABINE
     Indication: RECTAL CANCER
     Dosage: 5 DAYS PER WEEK
     Route: 065
  2. OXALIPLATIN. [Suspect]
     Active Substance: OXALIPLATIN
     Indication: RECTAL CANCER
     Dosage: 130 MG/M2 ON DAYS 1, 17, 3
     Route: 065

REACTIONS (5)
  - Proctitis [Unknown]
  - Erythema [Unknown]
  - Leukopenia [Unknown]
  - Toxicity to various agents [Unknown]
  - Diarrhoea [Unknown]
